FAERS Safety Report 9467351 (Version 1)
Quarter: 2013Q3

REPORT INFORMATION
  Report Type: Report from Study
  Country: CO (occurrence: CO)
  Receive Date: 20130821
  Receipt Date: 20130821
  Transmission Date: 20140515
  Serious: Yes (Hospitalization)
  Sender: FDA-Public Use
  Company Number: CO-BRISTOL-MYERS SQUIBB COMPANY-19177732

PATIENT
  Age: 45 Year
  Sex: Female

DRUGS (2)
  1. IXABEPILONE [Suspect]
     Indication: BREAST CANCER
     Dosage: DATE OF LAST CYCLE: 31-JUL-2013.
     Dates: start: 20130614
  2. XELODA [Concomitant]

REACTIONS (5)
  - Cyanosis [Unknown]
  - Urinary incontinence [Unknown]
  - Metastases to lung [Unknown]
  - Infected neoplasm [Unknown]
  - Pleural effusion [Unknown]
